FAERS Safety Report 7979094-2 (Version None)
Quarter: 2011Q4

REPORT INFORMATION
  Report Type: 
  Country: None (occurrence: None)
  Receive Date: 20111214
  Receipt Date: 20111209
  Transmission Date: 20120403
  Serious: No
  Sender: FDA-Public Use
  Company Number: US-PFIZER INC-2011301275

PATIENT
  Sex: Male

DRUGS (1)
  1. ZARONTIN [Suspect]
     Dosage: UNK

REACTIONS (2)
  - VOMITING [None]
  - RETCHING [None]
